FAERS Safety Report 25117661 (Version 1)
Quarter: 2025Q1

REPORT INFORMATION
  Report Type: Spontaneous
  Country: DE (occurrence: DE)
  Receive Date: 20250325
  Receipt Date: 20250325
  Transmission Date: 20250408
  Serious: Yes (Other)
  Sender: RANBAXY
  Company Number: DE-CADRBFARM-2025333886

PATIENT
  Age: 42 Year
  Sex: Male
  Weight: 88 kg

DRUGS (1)
  1. ROSUVASTATIN [Suspect]
     Active Substance: ROSUVASTATIN
     Indication: Carotid arteriosclerosis
     Route: 048
     Dates: start: 202308, end: 20241220

REACTIONS (7)
  - Haematuria [Recovering/Resolving]
  - Flank pain [Recovered/Resolved]
  - Semen discolouration [Recovered/Resolved]
  - Hypotonia [Recovered/Resolved]
  - Renal pain [Recovered/Resolved]
  - Gait disturbance [Recovered/Resolved]
  - Semen viscosity abnormal [Recovered/Resolved]

NARRATIVE: CASE EVENT DATE: 20231201
